FAERS Safety Report 16031064 (Version 3)
Quarter: 2019Q2

REPORT INFORMATION
  Report Type: Spontaneous
  Country: FR (occurrence: FR)
  Receive Date: 20190304
  Receipt Date: 20190422
  Transmission Date: 20190711
  Serious: Yes (Death)
  Sender: FDA-Public Use
  Company Number: FR-PFIZER INC-2019088798

PATIENT
  Age: 58 Year
  Sex: Male
  Weight: 74 kg

DRUGS (7)
  1. BISOCE [Concomitant]
     Active Substance: BISOPROLOL
     Dosage: UNK
     Route: 048
  2. NOXAFIL [Suspect]
     Active Substance: POSACONAZOLE
     Indication: ANTIFUNGAL PROPHYLAXIS
     Dosage: 300 MG, 1X/DAY
     Route: 048
     Dates: start: 20190201
  3. DIFFU K [Suspect]
     Active Substance: POTASSIUM CHLORIDE
     Indication: HYPOKALAEMIA
     Dosage: 3 DF, 1X/DAY
     Route: 048
     Dates: start: 20190203
  4. TAZOCILLINE [Suspect]
     Active Substance: PIPERACILLIN SODIUM\TAZOBACTAM SODIUM
     Indication: BACTERIAL INFECTION
     Dosage: 9 G, 1X/DAY
     Route: 042
     Dates: start: 20190204
  5. PROCORALAN [Suspect]
     Active Substance: IVABRADINE
     Dosage: UNK
     Route: 048
  6. DAPTOMYCIN. [Suspect]
     Active Substance: DAPTOMYCIN
     Indication: BACTERIAL INFECTION
     Dosage: 500 MG, 2X/DAY
     Route: 042
     Dates: start: 20190202
  7. CIFLOX [CIPROFLOXACIN] [Suspect]
     Active Substance: CIPROFLOXACIN
     Indication: BACTERIAL INFECTION
     Dosage: 500 MG, 1X/DAY
     Route: 048
     Dates: start: 20190204

REACTIONS (1)
  - Cardio-respiratory arrest [Fatal]

NARRATIVE: CASE EVENT DATE: 20190206
